FAERS Safety Report 5780923-1 (Version None)
Quarter: 2008Q2

REPORT INFORMATION
  Report Type: 
  Country: None (occurrence: None)
  Receive Date: 20080620
  Receipt Date: 20080528
  Transmission Date: 20081010
  Serious: Yes (Hospitalization)
  Sender: FDA-Public Use
  Company Number: GB-PFIZER INC-2008045918

PATIENT
  Age: 73 Year
  Sex: Male

DRUGS (14)
  1. ATORVASTATIN [Suspect]
     Route: 048
  2. PREDNISOLONE [Suspect]
     Route: 048
  3. RIFATER [Suspect]
     Indication: TUBERCULOSIS
     Dosage: FREQ:1 DOSE 6 TIMES DAILY
     Route: 048
  4. AMIODARONE HCL [Concomitant]
     Route: 048
  5. ASPIRIN [Concomitant]
     Route: 048
  6. ATENOLOL [Concomitant]
     Indication: PALPITATIONS
  7. CARBAMAZEPINE [Concomitant]
     Route: 048
  8. DIPYRIDAMOLE [Concomitant]
     Route: 048
  9. METOCLOPRAMIDE [Concomitant]
     Indication: VOMITING
     Route: 048
  10. NICORANDIL [Concomitant]
     Indication: CHEST PAIN
     Route: 048
  11. PERINDOPRIL [Concomitant]
     Route: 048
  12. TEMAZEPAM [Concomitant]
     Route: 048
  13. WARFARIN SODIUM [Concomitant]
     Indication: ATRIAL FIBRILLATION
     Route: 048
  14. PYRIDOXINE [Concomitant]
     Indication: TUBERCULOSIS
     Route: 048

REACTIONS (5)
  - ACTIVITIES OF DAILY LIVING IMPAIRED [None]
  - DECREASED APPETITE [None]
  - DYSPNOEA [None]
  - LIVER DISORDER [None]
  - LIVER FUNCTION TEST ABNORMAL [None]
